FAERS Safety Report 5651119-9 (Version None)
Quarter: 2008Q1

REPORT INFORMATION
  Report Type: 
  Country: None (occurrence: None)
  Receive Date: 20080131
  Receipt Date: 20071211
  Transmission Date: 20080703
  Serious: No
  Sender: FDA-Public Use
  Company Number: US200712002473

PATIENT
  Age: 57 Year
  Sex: Female
  Weight: 104.3 kg

DRUGS (2)
  1. BYETTA [Suspect]
     Indication: TYPE 2 DIABETES MELLITUS
     Dosage: 5 UG, 2/D, SUBCUTANEOUS
     Route: 058
     Dates: start: 20071127
  2. GLYBURIDE [Concomitant]

REACTIONS (4)
  - DIARRHOEA [None]
  - FEELING JITTERY [None]
  - PAIN [None]
  - PALPITATIONS [None]
